FAERS Safety Report 4430254-7 (Version None)
Quarter: 2004Q3

REPORT INFORMATION
  Report Type: 
  Country: None (occurrence: None)
  Receive Date: 20040820
  Receipt Date: 20040727
  Transmission Date: 20050211
  Serious: Yes (Hospitalization)
  Sender: FDA-Public Use
  Company Number: 4425

PATIENT
  Age: 61 Year
  Sex: Male

DRUGS (5)
  1. HYCAMTIN [Suspect]
     Dosage: 1.85MG PER DAY
     Route: 042
     Dates: start: 20040607, end: 20040709
  2. HALCION [Concomitant]
     Indication: HYPNOTHERAPY
     Dosage: .25MG PER DAY
     Route: 048
     Dates: start: 20040706
  3. PURSENNID [Concomitant]
  4. SM [Concomitant]
     Indication: GASTRIC DISORDER
  5. MEDICON [Concomitant]
     Indication: ANTITUSSIVE THERAPY
     Dosage: 15MG PER DAY
     Route: 048
     Dates: start: 20040701, end: 20040714

REACTIONS (6)
  - C-REACTIVE PROTEIN INCREASED [None]
  - INTERSTITIAL LUNG DISEASE [None]
  - LYMPHOCYTE COUNT INCREASED [None]
  - OXYGEN SATURATION DECREASED [None]
  - PO2 DECREASED [None]
  - PYREXIA [None]
